FAERS Safety Report 5657859-X (Version None)
Quarter: 2008Q1

REPORT INFORMATION
  Report Type: 
  Country: None (occurrence: None)
  Receive Date: 20080305
  Receipt Date: 20080219
  Transmission Date: 20080703
  Serious: Yes (Life-Threatening)
  Sender: FDA-Public Use
  Company Number: S08-FRA-00683-01

PATIENT
  Age: 26 Year
  Sex: Female

DRUGS (6)
  1. PROPESS (DINOPROSTONE) [Suspect]
     Indication: LABOUR INDUCTION
     Dosage: 10 MG ONCE VG
     Route: 067
     Dates: start: 20071206, end: 20071206
  2. PROPESS (DINOPROSTONE) [Suspect]
     Indication: LABOUR INDUCTION
     Dosage: 10 MG ONCE VG
     Route: 067
     Dates: start: 20071206, end: 20071207
  3. SPASFON LYOC (PHLOROGLUCINOL) [Concomitant]
  4. NUBIAN (NALBUPHINE) [Concomitant]
  5. MAG 2 (MAGNESIUM PIDOLATE) [Concomitant]
  6. ATARAX [Concomitant]

REACTIONS (6)
  - CAESAREAN SECTION [None]
  - DISSEMINATED INTRAVASCULAR COAGULATION [None]
  - DRUG EXPOSURE DURING PREGNANCY [None]
  - FOETAL DISTRESS SYNDROME [None]
  - PREMATURE RUPTURE OF MEMBRANES [None]
  - PREMATURE SEPARATION OF PLACENTA [None]
